FAERS Safety Report 13589830 (Version 1)
Quarter: 2017Q2

REPORT INFORMATION
  Report Type: Spontaneous
  Country: US (occurrence: US)
  Receive Date: 20170529
  Receipt Date: 20170529
  Transmission Date: 20170830
  Serious: No
  Sender: FDA-Public Use
  Company Number: US-TEVA-745024USA

PATIENT
  Sex: Female
  Weight: 58.97 kg

DRUGS (1)
  1. NORETHINDRONE. [Suspect]
     Active Substance: NORETHINDRONE
     Dosage: 5 MILLIGRAM DAILY;
     Route: 048
     Dates: start: 1996

REACTIONS (1)
  - Drug ineffective [Unknown]
